FAERS Safety Report 12680659 (Version 2)
Quarter: 2016Q4

REPORT INFORMATION
  Report Type: Spontaneous
  Country: AE (occurrence: AE)
  Receive Date: 20160824
  Receipt Date: 20161019
  Transmission Date: 20170207
  Serious: Yes (Other)
  Sender: FDA-Public Use
  Company Number: AE-JNJFOC-20160817450

PATIENT
  Age: 7 Year
  Sex: Male

DRUGS (1)
  1. CONCERTA [Suspect]
     Active Substance: METHYLPHENIDATE HYDROCHLORIDE
     Indication: PRODUCT USED FOR UNKNOWN INDICATION
     Route: 048
     Dates: start: 20151212, end: 20151224

REACTIONS (3)
  - Hyperventilation [Recovered/Resolved]
  - Nervousness [Recovered/Resolved]
  - Chest pain [Recovered/Resolved]
